FAERS Safety Report 7952508-X (Version None)
Quarter: 2011Q4

REPORT INFORMATION
  Report Type: 
  Country: None (occurrence: None)
  Receive Date: 20111201
  Receipt Date: 20111129
  Transmission Date: 20120403
  Serious: Yes (Other)
  Sender: FDA-Public Use
  Company Number: US-PFIZER INC-2010118101

PATIENT
  Age: 48 Year
  Sex: Female

DRUGS (2)
  1. LIPITOR [Suspect]
     Dosage: UNK
  2. LIPITOR [Interacting]
     Dosage: UNK

REACTIONS (7)
  - CEREBROVASCULAR ACCIDENT [None]
  - PANIC ATTACK [None]
  - OBSESSIVE-COMPULSIVE DISORDER [None]
  - DEPRESSION [None]
  - DRUG INTERACTION [None]
  - POST-TRAUMATIC STRESS DISORDER [None]
  - ANXIETY [None]
